FAERS Safety Report 5977185-9 (Version None)
Quarter: 2008Q4

REPORT INFORMATION
  Report Type: 
  Country: None (occurrence: None)
  Receive Date: 20081201
  Receipt Date: 20081201
  Transmission Date: 20090506
  Serious: Yes (Other)
  Sender: FDA-Public Use
  Company Number: None

PATIENT
  Age: 3 Year
  Sex: Female
  Weight: 16.3295 kg

DRUGS (2)
  1. ZOOTH DISNEY FAIRIES TOOTHPASTE ORAL B [Suspect]
     Dosage: PEA-SIZED AMOUNT 2 TIMES DAY
  2. ZOOTH BARBIE TOOTHBRUSH ORAL B [Suspect]

REACTIONS (6)
  - BREATH ODOUR [None]
  - DIARRHOEA [None]
  - GINGIVAL ERYTHEMA [None]
  - TONSILLAR HYPERTROPHY [None]
  - TONSILLAR ULCER [None]
  - TOOTH DISCOLOURATION [None]
